FAERS Safety Report 4319072-8 (Version None)
Quarter: 2004Q1

REPORT INFORMATION
  Report Type: 
  Country: None (occurrence: None)
  Receive Date: 20040318
  Receipt Date: 20040318
  Transmission Date: 20041129
  Serious: Yes (Hospitalization)
  Sender: FDA-Public Use
  Company Number: None

PATIENT
  Sex: Female
  Weight: 72.5755 kg

DRUGS (1)
  1. ABILIFY [Suspect]
     Indication: PSYCHOTIC DISORDER
     Dosage: PILL FORM
     Dates: start: 20021220, end: 20030305

REACTIONS (9)
  - ABNORMAL BEHAVIOUR [None]
  - ANXIETY [None]
  - CONFUSIONAL STATE [None]
  - EATING DISORDER [None]
  - INSOMNIA [None]
  - MALNUTRITION [None]
  - MANIA [None]
  - MOVEMENT DISORDER [None]
  - RESTLESSNESS [None]
